FAERS Safety Report 7326775-X (Version None)
Quarter: 2011Q1

REPORT INFORMATION
  Report Type: 
  Country: None (occurrence: None)
  Receive Date: 20110223
  Receipt Date: 20110211
  Transmission Date: 20110831
  Serious: Yes (Hospitalization)
  Sender: FDA-Public Use
  Company Number: 2011S1000199

PATIENT
  Sex: Male

DRUGS (5)
  1. INDERAL [Concomitant]
  2. LEVOTHYROXINE [Concomitant]
  3. LIVALO [Suspect]
     Indication: HYPERLIPIDAEMIA
     Dosage: 1 MG; PO
     Route: 048
     Dates: start: 20101119, end: 20110101
  4. CLONOPIN [Concomitant]
  5. BENICAR [Concomitant]

REACTIONS (2)
  - BLOOD CREATINE PHOSPHOKINASE INCREASED [None]
  - DEHYDRATION [None]
